FAERS Safety Report 4838473-2 (Version None)
Quarter: 2005Q4

REPORT INFORMATION
  Report Type: 
  Country: None (occurrence: None)
  Receive Date: 20051129
  Receipt Date: 20051122
  Transmission Date: 20060501
  Serious: Yes (Other)
  Sender: FDA-Public Use
  Company Number: JP-SP-2005-02561

PATIENT
  Age: 81 Year
  Sex: Male

DRUGS (3)
  1. IMMUCYST [Suspect]
     Indication: BLADDER CANCER
     Route: 043
     Dates: start: 20040901
  2. NITRENDIPINE [Concomitant]
     Route: 048
     Dates: end: 20040723
  3. ALLOPURINOL [Concomitant]
     Route: 048
     Dates: end: 20040723

REACTIONS (2)
  - PYREXIA [None]
  - WHITE BLOOD CELL COUNT ABNORMAL [None]
